FAERS Safety Report 11173519 (Version 1)
Quarter: 2015Q2

REPORT INFORMATION
  Report Type: Spontaneous
  Country: AR (occurrence: AR)
  Receive Date: 20150609
  Receipt Date: 20150609
  Transmission Date: 20150821
  Serious: Yes (Death, Other)
  Sender: FDA-Public Use
  Company Number: AR-ROCHE-1589615

PATIENT
  Sex: Female
  Weight: 53 kg

DRUGS (1)
  1. CAPECITABINE. [Suspect]
     Active Substance: CAPECITABINE
     Indication: PANCREATIC CARCINOMA METASTATIC
     Dosage: 6 PILLS/DAY 14 CONSECUTIVE DAYS AND 1 WEEK OFF
     Route: 048
     Dates: start: 2015

REACTIONS (7)
  - Haemorrhage [Unknown]
  - Thrombosis [Unknown]
  - Skin exfoliation [Unknown]
  - Death [Fatal]
  - Onychomadesis [Unknown]
  - Off label use [Unknown]
  - Overdose [Unknown]

NARRATIVE: CASE EVENT DATE: 2015
